FAERS Safety Report 7960991-9 (Version None)
Quarter: 2011Q4

REPORT INFORMATION
  Report Type: 
  Country: None (occurrence: None)
  Receive Date: 20111207
  Receipt Date: 20111202
  Transmission Date: 20120403
  Serious: No
  Sender: FDA-Public Use
  Company Number: US-PFIZER INC-2011295032

PATIENT
  Sex: Female
  Weight: 74.83 kg

DRUGS (4)
  1. PRISTIQ [Suspect]
     Indication: WEIGHT INCREASED
     Dosage: 50 MG, 2X/DAY
     Route: 048
     Dates: start: 20111018
  2. LIPITOR [Concomitant]
     Dosage: UNK
  3. EFFEXOR XR [Suspect]
     Indication: DEPRESSION
     Dosage: 37.5 MG, 1X/DAY
     Route: 048
     Dates: start: 19990601, end: 20110501
  4. PRISTIQ [Suspect]
     Indication: DEPRESSION
     Dosage: 50 MG, 1X/DAY
     Route: 048
     Dates: start: 20110518, end: 20111017

REACTIONS (5)
  - DEPRESSION [None]
  - DISTURBANCE IN ATTENTION [None]
  - ASTHENIA [None]
  - WEIGHT DECREASED [None]
  - DRUG INEFFECTIVE [None]
